FAERS Safety Report 14459528 (Version 1)
Quarter: 2018Q1

REPORT INFORMATION
  Report Type: Other
  Country: FR (occurrence: FR)
  Receive Date: 20180130
  Receipt Date: 20180130
  Transmission Date: 20180509
  Serious: Yes (Hospitalization)
  Sender: FDA-Public Use
  Company Number: FR-GLENMARK PHARMACEUTICALS-2017GMK031276

PATIENT

DRUGS (10)
  1. DEXAMETHASONE. [Suspect]
     Active Substance: DEXAMETHASONE
     Indication: ACUTE LYMPHOCYTIC LEUKAEMIA
     Dosage: 13.8 MG, UNK
     Route: 048
     Dates: start: 20171123, end: 20171127
  2. 6-MERCAPTOPURINE MONOHYDRATE [Suspect]
     Active Substance: MERCAPTOPURINE
     Indication: ACUTE LYMPHOCYTIC LEUKAEMIA
     Dosage: 69.0 MG, UNK
     Route: 048
     Dates: start: 20171123, end: 20171128
  3. CYTARABINE. [Suspect]
     Active Substance: CYTARABINE
     Indication: ACUTE LYMPHOCYTIC LEUKAEMIA
     Dosage: 2760 MG, UNK
     Route: 042
     Dates: start: 20171127, end: 20171127
  4. HYDROCORTISONE BUTYRATE. [Suspect]
     Active Substance: HYDROCORTISONE BUTYRATE
     Indication: PRODUCT USED FOR UNKNOWN INDICATION
     Dosage: 15 MG, UNK
     Route: 037
     Dates: start: 20171124, end: 20171124
  5. METHOTREXATE. [Suspect]
     Active Substance: METHOTREXATE
     Indication: ACUTE LYMPHOCYTIC LEUKAEMIA
     Dosage: 12.0 UNK, UNK
     Route: 037
     Dates: start: 20171124, end: 20171124
  6. PEGASPARGASE [Suspect]
     Active Substance: PEGASPARGASE
     Indication: ACUTE LYMPHOCYTIC LEUKAEMIA
     Dosage: 1725 IU, UNK
     Route: 042
     Dates: start: 20171128, end: 20171128
  7. DEXAMETHASONE. [Suspect]
     Active Substance: DEXAMETHASONE
     Dosage: 6.5 MG, UNK
     Route: 048
     Dates: start: 20171128, end: 20171128
  8. VINCRISTINE [Suspect]
     Active Substance: VINCRISTINE
     Indication: ACUTE LYMPHOCYTIC LEUKAEMIA
     Dosage: 1 MG, UNK
     Route: 042
     Dates: start: 20171123, end: 20171128
  9. METHOTREXATE. [Suspect]
     Active Substance: METHOTREXATE
     Dosage: 3460 MG, UNK
     Route: 042
     Dates: start: 20171123, end: 20171123
  10. CYTARABINE. [Suspect]
     Active Substance: CYTARABINE
     Dosage: 30 MG, UNK
     Route: 037
     Dates: start: 20171124, end: 20171124

REACTIONS (1)
  - Varicella [Not Recovered/Not Resolved]

NARRATIVE: CASE EVENT DATE: 20171219
